FAERS Safety Report 12418919 (Version 1)
Quarter: 2016Q2

REPORT INFORMATION
  Report Type: Spontaneous
  Country: US (occurrence: US)
  Receive Date: 20160531
  Receipt Date: 20160531
  Transmission Date: 20160815
  Serious: Yes (Other)
  Sender: FDA-Public Use
  Company Number: US-MALLINCKRODT-T201601774

PATIENT
  Age: 16 Year
  Sex: Female

DRUGS (2)
  1. GABLOFEN [Suspect]
     Active Substance: BACLOFEN
     Dosage: 2000 MCG/ML CONCENTRATION, 100 MCG/DAY DOSE
     Route: 037
  2. GABLOFEN [Suspect]
     Active Substance: BACLOFEN
     Indication: MUSCLE SPASTICITY
     Dosage: 1000 MCG/ML CONCENTRATION, 100 MCG/DAY DOSE
     Route: 037

REACTIONS (5)
  - Seroma [Unknown]
  - Infection [Unknown]
  - Muscle spasms [Unknown]
  - Device kink [Recovered/Resolved]
  - Cerebrospinal fluid leakage [Unknown]

NARRATIVE: CASE EVENT DATE: 20160509
